FAERS Safety Report 13278621 (Version 1)
Quarter: 2017Q1

REPORT INFORMATION
  Report Type: Spontaneous
  Country: US (occurrence: US)
  Receive Date: 20170228
  Receipt Date: 20170228
  Transmission Date: 20170428
  Serious: No
  Sender: FDA-Public Use
  Company Number: GXBR2016US003344

PATIENT
  Age: 85 Year
  Sex: Female
  Weight: 46.26 kg

DRUGS (4)
  1. HCTZ [Concomitant]
     Active Substance: HYDROCHLOROTHIAZIDE
     Indication: HYPERTENSION
     Dosage: UNK DF, UNK
     Route: 065
  2. SPIRONOLACTONE. [Concomitant]
     Active Substance: SPIRONOLACTONE
     Indication: HYPERTENSION
     Dosage: UNK DF, UNK
     Route: 065
  3. TERAZOSIN HCL CAPSULES [Suspect]
     Active Substance: TERAZOSIN HYDROCHLORIDE
     Indication: HYPERTENSION
     Dosage: 1 MG, QHS
     Route: 048
     Dates: start: 20160628
  4. TRAMADOL. [Concomitant]
     Active Substance: TRAMADOL
     Indication: BACK PAIN
     Dosage: UNK DF, UNK
     Route: 065

REACTIONS (11)
  - Night sweats [Recovering/Resolving]
  - Micturition urgency [Recovering/Resolving]
  - Constipation [Recovered/Resolved]
  - Rhinorrhoea [Recovering/Resolving]
  - Malaise [Recovering/Resolving]
  - Productive cough [Recovering/Resolving]
  - Pollakiuria [Recovering/Resolving]
  - Cold sweat [Recovering/Resolving]
  - Dry mouth [Recovering/Resolving]
  - Dry eye [Recovering/Resolving]
  - Insomnia [Recovering/Resolving]

NARRATIVE: CASE EVENT DATE: 20160628
